FAERS Safety Report 11516271 (Version 1)
Quarter: 2015Q3

REPORT INFORMATION
  Report Type: Spontaneous
  Country: US (occurrence: None)
  Receive Date: 20150916
  Receipt Date: 20150916
  Transmission Date: 20151125
  Serious: No
  Sender: FDA-Public Use
  Company Number: None

PATIENT
  Age: 46 Year
  Sex: Male

DRUGS (1)
  1. TEMOZOLOMIDE 250MG TEVA [Suspect]
     Active Substance: TEMOZOLOMIDE
     Indication: NEOPLASM MALIGNANT
     Dosage: DAILY FOR 5 DAYS
     Route: 048
     Dates: start: 20150810

REACTIONS (2)
  - Seizure [None]
  - Dyspnoea [None]
